FAERS Safety Report 8447042-7 (Version None)
Quarter: 2012Q2

REPORT INFORMATION
  Report Type: 
  Country: None (occurrence: None)
  Receive Date: 20120612
  Receipt Date: 20120604
  Transmission Date: 20120825
  Serious: Yes (Life-Threatening, Hospitalization)
  Sender: FDA-Public Use
  Company Number: WAES 1204USA01149

PATIENT
  Age: 70 Year
  Sex: Female

DRUGS (8)
  1. OLMETEC [Concomitant]
  2. LANSOPRAZOLE [Concomitant]
  3. FOSAMAX [Concomitant]
  4. ZOLINZA [Suspect]
     Indication: MYCOSIS FUNGOIDES
     Dosage: 200 MG/DAILY PO
     Route: 048
     Dates: start: 20111118, end: 20111212
  5. AMLODIPINE BESYLATE [Concomitant]
  6. OLOPATADINE HCL [Concomitant]
  7. PREDONINE [Concomitant]
  8. LEVOTHYROXINE SODIUM [Concomitant]

REACTIONS (6)
  - PLATELET COUNT DECREASED [None]
  - PYELONEPHRITIS [None]
  - WHITE BLOOD CELL COUNT INCREASED [None]
  - RESPIRATORY DISORDER [None]
  - ANAEMIA [None]
  - RENAL FAILURE ACUTE [None]
